FAERS Safety Report 15617874 (Version 5)
Quarter: 2020Q2

REPORT INFORMATION
  Report Type: Spontaneous
  Country: US (occurrence: US)
  Receive Date: 20181114
  Receipt Date: 20200407
  Transmission Date: 20200713
  Serious: No
  Sender: FDA-Public Use
  Company Number: US-PFIZER INC-2018463578

PATIENT
  Age: 62 Year
  Sex: Female

DRUGS (1)
  1. XELJANZ [Suspect]
     Active Substance: TOFACITINIB CITRATE
     Indication: RHEUMATOID ARTHRITIS
     Dosage: 5 MG, TAKE 1 TABLET TWICE DAILY
     Route: 048
     Dates: start: 20171109

REACTIONS (3)
  - Condition aggravated [Recovered/Resolved]
  - Peripheral swelling [Unknown]
  - Sinusitis [Unknown]

NARRATIVE: CASE EVENT DATE: 2018
